FAERS Safety Report 7511643-0 (Version None)
Quarter: 2011Q2

REPORT INFORMATION
  Report Type: 
  Country: None (occurrence: None)
  Receive Date: 20110531
  Receipt Date: 20110523
  Transmission Date: 20111010
  Serious: Yes (Hospitalization, Disabling)
  Sender: FDA-Public Use
  Company Number: US-PFIZER INC-2011083597

PATIENT
  Sex: Male
  Weight: 63.492 kg

DRUGS (10)
  1. SPIRIVA [Concomitant]
     Indication: DYSPNOEA
     Dosage: UNK
  2. PROTONIX [Suspect]
     Indication: GASTROOESOPHAGEAL REFLUX DISEASE
     Dosage: UNK
  3. CHANTIX [Suspect]
     Dosage: UNK
  4. PANTOPRAZOLE [Suspect]
     Indication: GASTROOESOPHAGEAL REFLUX DISEASE
  5. FENTANYL [Concomitant]
     Dosage: 100 MG, ONCE IN 48HOURS
  6. LEVOTHYROXINE [Concomitant]
     Indication: THYROID DISORDER
     Dosage: 50 MG, UNK
  7. METHOCARBAMOL [Concomitant]
     Dosage: 750 MG, 3X/DAY
  8. XANAX [Concomitant]
     Dosage: 1 MG, 4X/DAY
  9. OXYCODONE [Concomitant]
     Dosage: 30 MG, UNK
  10. TRAZODONE [Concomitant]
     Indication: INSOMNIA
     Dosage: UNK

REACTIONS (2)
  - MUSCULOSKELETAL DISCOMFORT [None]
  - INTERVERTEBRAL DISC DISORDER [None]
